FAERS Safety Report 6998933-5 (Version None)
Quarter: 2010Q3

REPORT INFORMATION
  Report Type: 
  Country: None (occurrence: None)
  Receive Date: 20100920
  Receipt Date: 20100517
  Transmission Date: 20110219
  Serious: Yes (Other)
  Sender: FDA-Public Use
  Company Number: US-ASTRAZENECA-2006UW27794

PATIENT
  Age: 17400 Day
  Sex: Female
  Weight: 83.9 kg

DRUGS (11)
  1. SEROQUEL [Suspect]
     Indication: BIPOLAR DISORDER
     Route: 048
     Dates: start: 20030107
  2. SEROQUEL [Suspect]
     Dosage: 100-200 MG
     Route: 048
     Dates: start: 20041203
  3. THORAZINE [Concomitant]
  4. ZYPREXA [Concomitant]
     Dosage: 5-10 MG
     Route: 048
     Dates: start: 20021006
  5. DEPAKOTE [Concomitant]
     Route: 048
     Dates: start: 20021006
  6. TRAZODONE HCL [Concomitant]
     Dates: start: 20011106
  7. TRAZODONE HCL [Concomitant]
     Dosage: 100-300 MG
     Route: 048
     Dates: start: 20031003
  8. NEURONTIN [Concomitant]
     Dates: start: 20011106
  9. TOPAMAX [Concomitant]
     Dosage: 25 MG TO 100 MG
     Dates: start: 20030107
  10. ABILIFY [Concomitant]
     Dates: start: 20050712
  11. CEFTRIAXONE [Concomitant]
     Dates: start: 20070628

REACTIONS (3)
  - DIABETES MELLITUS [None]
  - DIABETES MELLITUS INADEQUATE CONTROL [None]
  - TYPE 2 DIABETES MELLITUS [None]
